FAERS Safety Report 18897898 (Version 1)
Quarter: 2021Q1

REPORT INFORMATION
  Report Type: Spontaneous
  Country: US (occurrence: US)
  Receive Date: 20210212
  Receipt Date: 20210212
  Transmission Date: 20210420
  Serious: No
  Sender: FDA-Public Use
  Company Number: None

PATIENT
  Age: 60 Year
  Sex: Male
  Weight: 136 kg

DRUGS (10)
  1. OTEZLA [Suspect]
     Active Substance: APREMILAST
  2. GABAPENTIN. [Concomitant]
     Active Substance: GABAPENTIN
  3. CEFADROXIL. [Concomitant]
     Active Substance: CEFADROXIL
  4. OMEPRAZOLE. [Concomitant]
     Active Substance: OMEPRAZOLE
  5. TASIGNA [Suspect]
     Active Substance: NILOTINIB
     Indication: CHRONIC MYELOID LEUKAEMIA
     Route: 048
     Dates: start: 20210126
  6. CLONAZEPAM. [Concomitant]
     Active Substance: CLONAZEPAM
  7. FUROSEMIDE. [Concomitant]
     Active Substance: FUROSEMIDE
  8. HYDROMORPHONE [Concomitant]
     Active Substance: HYDROMORPHONE
  9. OTEZLA [Concomitant]
     Active Substance: APREMILAST
  10. ELIQUIS [Concomitant]
     Active Substance: APIXABAN

REACTIONS (2)
  - Psoriasis [None]
  - Skin reaction [None]

NARRATIVE: CASE EVENT DATE: 20210211
